FAERS Safety Report 11140705 (Version 1)
Quarter: 2015Q2

REPORT INFORMATION
  Report Type: Spontaneous
  Country: US (occurrence: US)
  Receive Date: 20150525
  Receipt Date: 20150525
  Transmission Date: 20150821
  Serious: No
  Sender: FDA-Public Use
  Company Number: US-JNJFOC-20140400551

PATIENT
  Sex: Male

DRUGS (1)
  1. RISPERDAL [Suspect]
     Active Substance: RISPERIDONE
     Indication: ATTENTION DEFICIT/HYPERACTIVITY DISORDER
     Route: 048
     Dates: start: 2010, end: 2012

REACTIONS (7)
  - Emotional distress [Unknown]
  - Tenderness [Unknown]
  - Overweight [Recovering/Resolving]
  - Discomfort [Unknown]
  - Blood prolactin increased [Unknown]
  - Pain [Unknown]
  - Gynaecomastia [Unknown]
